FAERS Safety Report 20968803 (Version 1)
Quarter: 2022Q2

REPORT INFORMATION
  Report Type: Spontaneous
  Country: US (occurrence: US)
  Receive Date: 20220616
  Receipt Date: 20220616
  Transmission Date: 20220720
  Serious: No
  Sender: FDA-Public Use
  Company Number: US-PFIZER INC-202200840032

PATIENT
  Age: 73 Year
  Sex: Female
  Weight: 81.65 kg

DRUGS (4)
  1. PAXLOVID [Suspect]
     Active Substance: NIRMATRELVIR\RITONAVIR
     Indication: COVID-19 treatment
     Dosage: [PF-07321332 300 MG]/[RITONAVIR 100 MG]; 2X/DAY
     Route: 048
     Dates: start: 20220613
  2. ATIVAN [Suspect]
     Active Substance: LORAZEPAM
     Dosage: 5 MG WITH WATER
     Dates: start: 20220613
  3. FORTEO [Concomitant]
     Active Substance: TERIPARATIDE
     Indication: Bone loss
     Dosage: UNK
  4. HYDROXYCHLOROQUINE SULFATE [Concomitant]
     Active Substance: HYDROXYCHLOROQUINE SULFATE
     Indication: Rheumatoid arthritis
     Dosage: 300 MG, 1X/DAY
     Dates: start: 2021

REACTIONS (4)
  - Hyperaesthesia [Unknown]
  - Pruritus [Unknown]
  - Burning sensation [Unknown]
  - Prescription drug used without a prescription [Unknown]

NARRATIVE: CASE EVENT DATE: 20220613
